FAERS Safety Report 16827924 (Version 1)
Quarter: 2019Q3

REPORT INFORMATION
  Report Type: Spontaneous
  Country: US (occurrence: US)
  Receive Date: 20190729
  Receipt Date: 20190729
  Transmission Date: 20191005
  Serious: No
  Sender: FDA-Public Use
  Company Number: None

PATIENT
  Age: 69 Year
  Sex: Female

DRUGS (1)
  1. IBRANCE [Suspect]
     Active Substance: PALBOCICLIB
     Indication: NEOPLASM MALIGNANT
     Dosage: ?          OTHER FREQUENCY:Q21D ON/7 DAYS;?
     Route: 048
     Dates: start: 20190630

REACTIONS (2)
  - Decreased appetite [None]
  - White blood cell count decreased [None]

NARRATIVE: CASE EVENT DATE: 20190703
